FAERS Safety Report 10246953 (Version 2)
Quarter: 2015Q3

REPORT INFORMATION
  Report Type: Spontaneous
  Country: US (occurrence: US)
  Receive Date: 20140619
  Receipt Date: 20150717
  Transmission Date: 20151125
  Serious: Yes (Other)
  Sender: FDA-Public Use
  Company Number: US-SA-2014SA078616

PATIENT
  Age: 58 Year

DRUGS (2)
  1. ASPIRIN. [Concomitant]
     Active Substance: ASPIRIN
     Dates: start: 200406, end: 200702
  2. PLAVIX [Suspect]
     Active Substance: CLOPIDOGREL BISULFATE
     Indication: STENT PLACEMENT
     Route: 048
     Dates: start: 200406, end: 200702

REACTIONS (6)
  - Ulcer haemorrhage [Unknown]
  - Cerebral haemorrhage [Unknown]
  - Subdural haematoma [Unknown]
  - Cognitive disorder [Unknown]
  - Coordination abnormal [Unknown]
  - Multiple injuries [Unknown]

NARRATIVE: CASE EVENT DATE: 20070219
